FAERS Safety Report 8777296 (Version 1)
Quarter: 2012Q4

REPORT INFORMATION
  Report Type: 
  Country: US (occurrence: US)
  Receive Date: 20120910
  Receipt Date: 20120910
  Transmission Date: 20130627
  Serious: No
  Sender: FDA-Public Use
  Company Number: US-ASTRAZENECA-2012SE60573

PATIENT
  Age: 77 Year
  Sex: Female
  Weight: 72.6 kg

DRUGS (3)
  1. FASLODEX [Suspect]
     Dosage: 250MG ON EACH BUTTOCK FOR A TOTAL OF 500MG ONCE A MONTH
     Route: 030
     Dates: start: 201111
  2. CRESTOR [Suspect]
     Route: 048
  3. ZOMENTA [Concomitant]

REACTIONS (9)
  - Hypoaesthesia [Not Recovered/Not Resolved]
  - Paraesthesia [Not Recovered/Not Resolved]
  - Insomnia [Not Recovered/Not Resolved]
  - Weight decreased [Not Recovered/Not Resolved]
  - Decreased appetite [Unknown]
  - Hearing impaired [Unknown]
  - Rash [Unknown]
  - Swelling [Unknown]
  - Myalgia [Unknown]
